FAERS Safety Report 5862265-9 (Version None)
Quarter: 2008Q3

REPORT INFORMATION
  Report Type: 
  Country: None (occurrence: None)
  Receive Date: 20080828
  Receipt Date: 20080820
  Transmission Date: 20090109
  Serious: Yes (Other)
  Sender: FDA-Public Use
  Company Number: GB-ALLERGAN-0808286US

PATIENT
  Sex: Female

DRUGS (6)
  1. TIMOLOL MALEATE SOL UNSPECIFID [Suspect]
     Indication: DRUG USE FOR UNKNOWN INDICATION
     Dates: start: 20070101
  2. VISCOTEARS [Suspect]
     Indication: DRY EYE
     Route: 047
     Dates: start: 20060901
  3. VISCOTEARS [Suspect]
     Dosage: UNK, UNK
     Route: 047
     Dates: start: 20070830, end: 20080325
  4. VISCOTEARS [Suspect]
     Route: 047
     Dates: start: 20080325
  5. DIAZEPAM [Concomitant]
     Route: 048
  6. LIQUIFILM TEARS PRES FREE [Concomitant]
     Route: 047
     Dates: start: 20070101

REACTIONS (3)
  - ANXIETY [None]
  - EYE MOVEMENT DISORDER [None]
  - VISUAL IMPAIRMENT [None]
